FAERS Safety Report 9781429 (Version 1)
Quarter: 2013Q4

REPORT INFORMATION
  Report Type: Spontaneous
  Country: DK (occurrence: DK)
  Receive Date: 20131224
  Receipt Date: 20131224
  Transmission Date: 20140711
  Serious: Yes (Hospitalization)
  Sender: FDA-Public Use
  Company Number: PHHY2013DK148318

PATIENT
  Age: 74 Year
  Sex: Male
  Weight: 93 kg

DRUGS (3)
  1. METOPROLOLSUCCINAT HEXAL [Suspect]
     Indication: CARDIAC FIBRILLATION
     Dosage: 2 DF, QD
     Route: 048
     Dates: start: 20111218, end: 20131109
  2. DIGOXIN DAK [Suspect]
     Indication: CARDIAC FIBRILLATION
     Dosage: 4 DF, QD
     Route: 048
     Dates: start: 20111218, end: 20131109
  3. NITROGLYCERIN [Concomitant]
     Dates: end: 20131109

REACTIONS (4)
  - Angina pectoris [Recovered/Resolved]
  - Pain [Recovering/Resolving]
  - Heart rate decreased [Recovered/Resolved]
  - Paraesthesia [Recovered/Resolved]
